FAERS Safety Report 10355546 (Version 2)
Quarter: 2014Q3

REPORT INFORMATION
  Report Type: Spontaneous
  Country: US (occurrence: US)
  Receive Date: 20140731
  Receipt Date: 20140904
  Transmission Date: 20150326
  Serious: No
  Sender: FDA-Public Use
  Company Number: US-PFIZER INC-2014210042

PATIENT
  Age: 11 Year
  Sex: Female
  Weight: 79 kg

DRUGS (1)
  1. GENOTROPIN [Suspect]
     Active Substance: SOMATROPIN
     Indication: DWARFISM
     Dosage: 2.2 MG, CYCLIC (DAILY FOR 6 DAYS A WEEK)
     Route: 058
     Dates: start: 2011

REACTIONS (3)
  - Hunger [Unknown]
  - Cognitive disorder [Unknown]
  - Fatigue [Unknown]
